FAERS Safety Report 5847212-8 (Version None)
Quarter: 2008Q3

REPORT INFORMATION
  Report Type: 
  Country: None (occurrence: None)
  Receive Date: 20080815
  Receipt Date: 20080806
  Transmission Date: 20090109
  Serious: Yes (Death, Other)
  Sender: FDA-Public Use
  Company Number: ES-GENENTECH-265894

PATIENT

DRUGS (6)
  1. MABTHERA [Suspect]
     Indication: BURKITT'S LYMPHOMA
     Dosage: 375 MG/M2, Q3W
  2. CYCLOPHOSPHAMIDE [Suspect]
     Indication: BURKITT'S LYMPHOMA
     Dosage: 200 MG/M2, UNK
     Route: 042
  3. PREDNISONE TAB [Suspect]
     Indication: BURKITT'S LYMPHOMA
     Dosage: 60 MG/M2, D 1-5
     Route: 042
  4. VINDESINE [Suspect]
     Indication: BURKITT'S LYMPHOMA
     Dosage: 3 MG/M2, UNK
     Route: 042
  5. ETOPOSIDE [Suspect]
     Indication: BURKITT'S LYMPHOMA
     Dosage: 250 MG/M2, UNK
     Route: 042
  6. CYTARABINE [Suspect]
     Indication: BURKITT'S LYMPHOMA
     Dosage: 150 MG/M2, UNK
     Route: 042

REACTIONS (1)
  - PNEUMONIA [None]
